FAERS Safety Report 6917475-6 (Version None)
Quarter: 2010Q3

REPORT INFORMATION
  Report Type: 
  Country: None (occurrence: None)
  Receive Date: 20100810
  Receipt Date: 20100730
  Transmission Date: 20110219
  Serious: Yes (Hospitalization, Other)
  Sender: FDA-Public Use
  Company Number: ES-AMGEN-QUU428280

PATIENT
  Sex: Male

DRUGS (5)
  1. NPLATE [Suspect]
     Indication: IDIOPATHIC THROMBOCYTOPENIC PURPURA
     Route: 058
     Dates: start: 20100611, end: 20100722
  2. PLATELETS [Concomitant]
  3. CYCLOSPORINE A [Concomitant]
  4. PREDNISONE [Concomitant]
  5. SEPTRIN [Concomitant]

REACTIONS (14)
  - BLEBITIS [None]
  - CHEST PAIN [None]
  - CONVULSION [None]
  - DRUG INEFFECTIVE [None]
  - ENCEPHALITIS VIRAL [None]
  - GASTRIC ULCER [None]
  - GASTROENTERITIS [None]
  - GASTROINTESTINAL HAEMORRHAGE [None]
  - GIARDIASIS [None]
  - MAJOR DEPRESSION [None]
  - MOUTH HAEMORRHAGE [None]
  - NEUTROPENIA [None]
  - THROMBOCYTOPENIA [None]
  - TREMOR [None]
